FAERS Safety Report 9478291 (Version 3)
Quarter: 2013Q4

REPORT INFORMATION
  Report Type: Spontaneous
  Country: IT (occurrence: IT)
  Receive Date: 20130827
  Receipt Date: 20131018
  Transmission Date: 20140711
  Serious: Yes (Hospitalization)
  Sender: FDA-Public Use
  Company Number: IT-EISAI INC-E2090-02822-SPO-IT

PATIENT
  Age: 79 Year
  Sex: Female

DRUGS (4)
  1. ZONEGRAN [Suspect]
     Indication: GENERALISED NON-CONVULSIVE EPILEPSY
     Dosage: 100 MG DAILY
     Route: 048
     Dates: start: 20080801, end: 20130812
  2. NATRILIX [Suspect]
     Indication: HYPERTENSION
     Route: 048
     Dates: start: 20080801, end: 20130812
  3. DILATREND [Concomitant]
     Indication: HYPERTENSION
     Route: 048
     Dates: start: 20080801, end: 20130812
  4. RISCHIARIL [Concomitant]
     Dosage: 1 SACHET DAILY
     Route: 048
     Dates: start: 20080801, end: 20130808

REACTIONS (1)
  - Toxic epidermal necrolysis [Recovered/Resolved]
